FAERS Safety Report 6632218-1 (Version None)
Quarter: 2010Q1

REPORT INFORMATION
  Report Type: 
  Country: None (occurrence: None)
  Receive Date: 20100312
  Receipt Date: 20100303
  Transmission Date: 20100710
  Serious: Yes (Other)
  Sender: FDA-Public Use
  Company Number: GXKR2010GB02594

PATIENT
  Age: 30 Year
  Sex: Male

DRUGS (2)
  1. OLANZAPINE [Interacting]
     Indication: PERSONALITY DISORDER
     Dosage: 10 MG, UNK
     Route: 048
     Dates: start: 20090309, end: 20090101
  2. SERTRALINE HCL [Suspect]
     Indication: OBSESSIVE-COMPULSIVE DISORDER
     Dosage: 100 MG
     Route: 048
     Dates: start: 20100118, end: 20100127

REACTIONS (3)
  - DRUG INTERACTION [None]
  - HEPATITIS [None]
  - JAUNDICE [None]
